FAERS Safety Report 14635948 (Version 2)
Quarter: 2018Q1

REPORT INFORMATION
  Report Type: Spontaneous
  Country: US (occurrence: US)
  Receive Date: 20180314
  Receipt Date: 20180314
  Transmission Date: 20180509
  Serious: Yes (Other)
  Sender: FDA-Public Use
  Company Number: US-BAUSCH-BL-2018-006665

PATIENT
  Sex: Male

DRUGS (2)
  1. INTERFERON [Suspect]
     Active Substance: INTERFERON
     Indication: HEPATITIS C
     Route: 065
     Dates: start: 2010
  2. RIBAVIRIN. [Suspect]
     Active Substance: RIBAVIRIN
     Indication: HEPATITIS C
     Route: 065
     Dates: start: 2010

REACTIONS (2)
  - Drug intolerance [Unknown]
  - Pancytopenia [Unknown]

NARRATIVE: CASE EVENT DATE: 2010
